FAERS Safety Report 6077819-7 (Version None)
Quarter: 2009Q1

REPORT INFORMATION
  Report Type: 
  Country: None (occurrence: None)
  Receive Date: 20090126
  Receipt Date: 20080124
  Transmission Date: 20090719
  Serious: Yes (Other)
  Sender: FDA-Public Use
  Company Number: WAES 0710USA04015

PATIENT
  Age: 45 Year
  Sex: Male

DRUGS (2)
  1. PRIMAXIN [Suspect]
  2. ANTIMICROBIAL [Concomitant]

REACTIONS (1)
  - CONVULSION [None]
